FAERS Safety Report 16392153 (Version 1)
Quarter: 2019Q2

REPORT INFORMATION
  Report Type: Spontaneous
  Country: JP (occurrence: JP)
  Receive Date: 20190605
  Receipt Date: 20190605
  Transmission Date: 20190711
  Serious: Yes (Other)
  Sender: FDA-Public Use
  Company Number: JP-RECORDATI RARE DISEASES INC.-JP-R13005-19-00143

PATIENT
  Age: 38 Month
  Sex: Male
  Weight: 1.93 kg

DRUGS (1)
  1. DACTINOMYCIN [Suspect]
     Active Substance: DACTINOMYCIN
     Indication: NEPHROBLASTOMA
     Route: 065

REACTIONS (4)
  - Vomiting [Unknown]
  - Ileus paralytic [Unknown]
  - Mucosal inflammation [Unknown]
  - Bone marrow failure [Unknown]
